FAERS Safety Report 8744321 (Version 2)
Quarter: 2013Q4

REPORT INFORMATION
  Report Type: Report from Study
  Country: US (occurrence: US)
  Receive Date: 20120825
  Receipt Date: 20131031
  Transmission Date: 20140711
  Serious: Yes (Hospitalization)
  Sender: FDA-Public Use
  Company Number: US-009507513-1208USA007551

PATIENT
  Age: 74 Year
  Sex: Male
  Weight: 108 kg

DRUGS (2)
  1. VORINOSTAT [Suspect]
     Indication: GLIOSARCOMA
     Dosage: 300 MG, ON DAYS 1-5 WEEKLY
     Route: 048
     Dates: start: 20120717
  2. TEMOZOLOMIDE [Suspect]
     Indication: GLIOSARCOMA
     Dosage: 75 MG/M2, QD
     Route: 048
     Dates: start: 20120717

REACTIONS (1)
  - Embolism [Recovered/Resolved]
